FAERS Safety Report 7140974-1 (Version None)
Quarter: 2010Q4

REPORT INFORMATION
  Report Type: 
  Country: None (occurrence: None)
  Receive Date: 20101122
  Receipt Date: 20101110
  Transmission Date: 20110411
  Serious: Yes (Hospitalization)
  Sender: FDA-Public Use
  Company Number: 021785

PATIENT
  Age: 45 Year
  Sex: Female
  Weight: 90 kg

DRUGS (1)
  1. KEPPRA [Suspect]
     Indication: GRAND MAL CONVULSION
     Dosage: (2000 MG, DAILY ORAL)
     Route: 048
     Dates: start: 20081103

REACTIONS (5)
  - AMNESIA [None]
  - BALANCE DISORDER [None]
  - CONVULSION [None]
  - DISEASE RECURRENCE [None]
  - UNEVALUABLE EVENT [None]
